FAERS Safety Report 6830677-2 (Version None)
Quarter: 2010Q3

REPORT INFORMATION
  Report Type: 
  Country: None (occurrence: None)
  Receive Date: 20100712
  Receipt Date: 20100330
  Transmission Date: 20110219
  Serious: Yes (Hospitalization, Other)
  Sender: FDA-Public Use
  Company Number: US-ASTRAZENECA-2006UW06050

PATIENT
  Age: 51 Year
  Sex: Female
  Weight: 88 kg

DRUGS (12)
  1. SEROQUEL [Suspect]
     Indication: INSOMNIA
     Route: 048
     Dates: start: 20030101, end: 20060101
  2. SEROQUEL [Suspect]
     Indication: DEPRESSION
     Route: 048
     Dates: start: 20030101, end: 20060101
  3. SEROQUEL [Suspect]
     Route: 048
     Dates: start: 20040601, end: 20060210
  4. SEROQUEL [Suspect]
     Route: 048
     Dates: start: 20040601, end: 20060210
  5. LASIX [Concomitant]
     Dates: start: 20040910
  6. NEXIUM [Concomitant]
     Dates: start: 20040910
  7. PREDNISONE [Concomitant]
     Dosage: 20 - 40 MG
     Dates: start: 20010910
  8. ATACAND [Concomitant]
     Dates: start: 20040912
  9. CYCLOPHOSPHAMIDE [Concomitant]
     Dates: start: 20040912
  10. PROTONIX [Concomitant]
     Dates: start: 20040912
  11. COREG [Concomitant]
     Dates: start: 20040912
  12. AZATHIOPRINE [Concomitant]
     Dates: start: 20040920

REACTIONS (6)
  - DIABETES MELLITUS [None]
  - DIABETIC KETOACIDOSIS [None]
  - RENAL FAILURE ACUTE [None]
  - SYSTEMIC LUPUS ERYTHEMATOSUS [None]
  - TYPE 1 DIABETES MELLITUS [None]
  - VISION BLURRED [None]
